FAERS Safety Report 7391447-2 (Version None)
Quarter: 2011Q2

REPORT INFORMATION
  Report Type: 
  Country: None (occurrence: None)
  Receive Date: 20110404
  Receipt Date: 20110322
  Transmission Date: 20111010
  Serious: Yes (Life-Threatening)
  Sender: FDA-Public Use
  Company Number: GB-BAYER-2011-026076

PATIENT
  Age: 38 Year
  Sex: Female
  Weight: 55 kg

DRUGS (1)
  1. MIRENA [Suspect]
     Indication: PRODUCT USED FOR UNKNOWN INDICATION
     Dosage: 20 ?G, CONT
     Route: 015

REACTIONS (4)
  - HAEMODYNAMIC INSTABILITY [None]
  - PERITONEAL HAEMORRHAGE [None]
  - RUPTURED ECTOPIC PREGNANCY [None]
  - HAEMORRHAGIC ANAEMIA [None]
